FAERS Safety Report 6139279-7 (Version None)
Quarter: 2009Q2

REPORT INFORMATION
  Report Type: 
  Country: None (occurrence: None)
  Receive Date: 20090401
  Receipt Date: 20090318
  Transmission Date: 20091009
  Serious: No
  Sender: FDA-Public Use
  Company Number: JP-BRISTOL-MYERS SQUIBB COMPANY-14433460

PATIENT
  Age: 72 Year
  Sex: Male
  Weight: 55 kg

DRUGS (12)
  1. ERBITUX [Suspect]
     Indication: RECTAL CANCER
     Dosage: 04DEC2008: 375MG (1 IN 1 WEEK)
     Route: 042
     Dates: start: 20081120, end: 20081120
  2. IRINOTECAN HCL [Suspect]
     Indication: RECTAL CANCER
     Dosage: 18DEC2008: 180MG (1 IN 2WK)
     Route: 042
     Dates: start: 20081120, end: 20081204
  3. DECADRON [Concomitant]
     Indication: PREMEDICATION
     Dosage: FORM = INJ
     Route: 042
     Dates: start: 20081120
  4. KYTRIL [Concomitant]
     Indication: PREMEDICATION
     Dosage: FORM = INJ
     Route: 042
  5. POLARAMINE [Concomitant]
     Indication: PREMEDICATION
     Dosage: FORM = INJ. 1 DOSAGEFORM = 0.5% 1 ML 1 AMPOULE
     Route: 042
     Dates: start: 20081120
  6. MUCOSTA [Concomitant]
     Route: 048
     Dates: start: 20081119
  7. AMOBAN [Concomitant]
     Dosage: FORMULATION: TABLET
     Route: 048
     Dates: start: 20081119
  8. OLMETEC [Concomitant]
     Dosage: FORMULATION: TABLET
     Route: 048
     Dates: start: 20081119
  9. CONIEL [Concomitant]
     Dosage: FORMULATION: TABLET
     Route: 048
     Dates: start: 20081119
  10. OMEPRAL [Concomitant]
     Dosage: FORMULATION: TABLET
     Route: 048
     Dates: start: 20081119
  11. MAGLAX [Concomitant]
     Dosage: FORMULATION: TABLET
     Route: 048
     Dates: start: 20081119
  12. YODEL-S [Concomitant]
     Dosage: FORMULATION: TABLET
     Route: 048
     Dates: start: 20081119

REACTIONS (1)
  - CEREBRAL ISCHAEMIA [None]
